FAERS Safety Report 9340609 (Version 1)
Quarter: 2013Q2

REPORT INFORMATION
  Report Type: Spontaneous
  Country: GB (occurrence: GB)
  Receive Date: 20130610
  Receipt Date: 20130610
  Transmission Date: 20140414
  Serious: Yes (Hospitalization)
  Sender: FDA-Public Use
  Company Number: GB-TEVA-410767ISR

PATIENT
  Age: 70 Year
  Sex: Female
  Weight: 82 kg

DRUGS (12)
  1. WARFARIN [Suspect]
     Indication: ATRIAL FIBRILLATION
     Dosage: 1MG/2MG ON ALTERNATE DAYS
     Route: 048
     Dates: start: 20081118
  2. ADIZEM-XL [Concomitant]
  3. ASPIRIN [Concomitant]
  4. CALCICHEW [Concomitant]
  5. CAPTOPRIL [Concomitant]
  6. LANSOPRAZOLE [Concomitant]
  7. METFORMIN [Concomitant]
  8. MIRTAZAPINE [Concomitant]
  9. MOVICOL [Concomitant]
  10. RISEDRONATE [Concomitant]
  11. PARACETAMOL [Concomitant]
  12. SIMVASTATIN [Concomitant]

REACTIONS (3)
  - Subdural haematoma [Not Recovered/Not Resolved]
  - Aphasia [Not Recovered/Not Resolved]
  - Fall [Not Recovered/Not Resolved]
